FAERS Safety Report 18479513 (Version 1)
Quarter: 2020Q4

REPORT INFORMATION
  Report Type: Spontaneous
  Country: TT (occurrence: TT)
  Receive Date: 20201109
  Receipt Date: 20201109
  Transmission Date: 20210114
  Serious: Yes (Hospitalization, Other)
  Sender: FDA-Public Use
  Company Number: TT-BAYER-2020-234077

PATIENT
  Age: 36 Year
  Sex: Female

DRUGS (2)
  1. DIANE (CYPROTERONE ACETATE\ETHINYL ESTRADIOL) [Suspect]
     Active Substance: CYPROTERONE ACETATE\ETHINYL ESTRADIOL
     Indication: CONTRACEPTION
     Route: 048
  2. MIRENA [Suspect]
     Active Substance: LEVONORGESTREL
     Indication: CONTRACEPTION
     Dosage: 20 ?G PER DAY CONTINUOUSLY
     Route: 015
     Dates: start: 202008

REACTIONS (6)
  - Dyspnoea [None]
  - Syncope [None]
  - Palpitations [None]
  - Deep vein thrombosis [None]
  - Peripheral swelling [None]
  - Pulmonary embolism [None]

NARRATIVE: CASE EVENT DATE: 202003
